FAERS Safety Report 8477011-2 (Version None)
Quarter: 2012Q2

REPORT INFORMATION
  Report Type: 
  Country: None (occurrence: None)
  Receive Date: 20120629
  Receipt Date: 20120622
  Transmission Date: 20120825
  Serious: No
  Sender: FDA-Public Use
  Company Number: US-BIOGENIDEC-2012BI022337

PATIENT
  Age: 48 Year
  Sex: Female

DRUGS (2)
  1. OXCARBAZEPINE [Concomitant]
     Indication: TRIGEMINAL NEURALGIA
  2. AVONEX [Suspect]
     Indication: MULTIPLE SCLEROSIS
     Route: 030
     Dates: start: 20120507

REACTIONS (4)
  - TRIGEMINAL NEURALGIA [None]
  - INFLUENZA LIKE ILLNESS [None]
  - FATIGUE [None]
  - ALTERED STATE OF CONSCIOUSNESS [None]
